FAERS Safety Report 7006789-X (Version None)
Quarter: 2010Q3

REPORT INFORMATION
  Report Type: 
  Country: None (occurrence: None)
  Receive Date: 20100922
  Receipt Date: 20100913
  Transmission Date: 20110219
  Serious: No
  Sender: FDA-Public Use
  Company Number: US-BIOGENIDEC-2010BI032189

PATIENT
  Age: 46 Year
  Sex: Female

DRUGS (2)
  1. TYSABRI [Suspect]
     Indication: MULTIPLE SCLEROSIS
     Route: 042
     Dates: start: 20041228, end: 20050201
  2. TYSABRI [Suspect]
     Route: 042
     Dates: start: 20070103

REACTIONS (10)
  - DEHYDRATION [None]
  - DIARRHOEA [None]
  - DIZZINESS [None]
  - DYSPEPSIA [None]
  - FALL [None]
  - GENERAL SYMPTOM [None]
  - INJECTION SITE PAIN [None]
  - POLLAKIURIA [None]
  - ROTATOR CUFF SYNDROME [None]
  - STERNAL FRACTURE [None]
